FAERS Safety Report 21006697 (Version 1)
Quarter: 2022Q2

REPORT INFORMATION
  Report Type: Spontaneous
  Country: AT (occurrence: AT)
  Receive Date: 20220625
  Receipt Date: 20220625
  Transmission Date: 20220721
  Serious: Yes (Other)
  Sender: FDA-Public Use
  Company Number: None

PATIENT
  Age: 63 Year
  Sex: Female

DRUGS (1)
  1. NAPROXEN [Suspect]
     Active Substance: NAPROXEN
     Indication: Toothache
     Dosage: ACCORDING TO TECHNICAL INFORMATION AND RECOMMENDATIONS FOR USE, FORM STRENGTH: 500 MG
     Dates: start: 20220512, end: 20220512

REACTIONS (1)
  - Type IV hypersensitivity reaction [Unknown]

NARRATIVE: CASE EVENT DATE: 20220512
